FAERS Safety Report 16433060 (Version 2)
Quarter: 2019Q2

REPORT INFORMATION
  Report Type: Spontaneous
  Country: US (occurrence: US)
  Receive Date: 20190614
  Receipt Date: 20190617
  Transmission Date: 20190711
  Serious: No
  Sender: FDA-Public Use
  Company Number: US-PFIZER INC-2019158774

PATIENT
  Age: 19 Year
  Sex: Female
  Weight: 50 kg

DRUGS (13)
  1. LYRICA [Suspect]
     Active Substance: PREGABALIN
     Dosage: 150 MG, 3X/DAY, (3 TABLETS 3 TIMES A DAY FOR TOTAL OF 450MG A DAY)
  2. LYRICA [Suspect]
     Active Substance: PREGABALIN
     Indication: FIBROMYALGIA
     Dosage: 50 MG, 2X/DAY
     Route: 048
     Dates: start: 20190311, end: 201903
  3. LYRICA [Suspect]
     Active Substance: PREGABALIN
     Dosage: 50 MG, 3X/DAY
     Route: 048
     Dates: start: 20190326, end: 2019
  4. LYRICA [Suspect]
     Active Substance: PREGABALIN
     Dosage: 6 DF, DAILY (6 TABLETS A DAY; 30-DAY SUPPLY SO PRESCRIPTION SHOULD BE WRITTEN FOR 180 NOT 240)
     Dates: start: 2019, end: 2019
  5. LYRICA [Suspect]
     Active Substance: PREGABALIN
     Dosage: 4 DF, UNK(TAKE 4 IN THE MORNING AND 4 AT NIGHT. )
  6. DIAZEPAM. [Concomitant]
     Active Substance: DIAZEPAM
     Indication: MUSCLE RELAXANT THERAPY
     Dosage: 20 MG, DAILY (4 TABLETS TAKEN BY MOUTH DAILY)
     Route: 048
     Dates: start: 20181206
  7. LYRICA [Suspect]
     Active Substance: PREGABALIN
     Dosage: 50 MG, UNK (SIX A DAY TO EQUAL THE 300 MG)
     Dates: start: 2019, end: 2019
  8. LYRICA [Suspect]
     Active Substance: PREGABALIN
     Dosage: 150 MG, 2X/DAY (50MG CAPSULES-3 CAPSULES (150MG))
     Route: 048
     Dates: start: 2019, end: 2019
  9. LYRICA [Suspect]
     Active Substance: PREGABALIN
     Dosage: 50 UNK, 1X/DAY [1 TAB AT BEDTIME]
     Route: 048
  10. HYDROCODONE/ACETAMINOPHEN [Concomitant]
     Active Substance: ACETAMINOPHEN\HYDROCODONE
     Dosage: 2 DF, UNK (2 TABLETS TAKEN BY MOUTH)/TAPERING DOSE DOWN BY 5MG WEEKLY
     Route: 048
  11. LYRICA [Suspect]
     Active Substance: PREGABALIN
     Dosage: 225 MG, 2X/DAY
     Route: 048
  12. HYDROCODONE/ACETAMINOPHEN [Concomitant]
     Active Substance: ACETAMINOPHEN\HYDROCODONE
     Indication: PAIN
     Dosage: UNK [HYDROCODONE: 5MG; ACETAMINOPHEN: 325 MG]
     Route: 048
     Dates: start: 20181206
  13. HYDROCODONE/ACETAMINOPHEN [Concomitant]
     Active Substance: ACETAMINOPHEN\HYDROCODONE
     Dosage: UNK

REACTIONS (4)
  - Drug ineffective [Unknown]
  - Product prescribing issue [Unknown]
  - Product use issue [Unknown]
  - Off label use [Unknown]

NARRATIVE: CASE EVENT DATE: 2019
